FAERS Safety Report 19376864 (Version 3)
Quarter: 2021Q3

REPORT INFORMATION
  Report Type: Report from Study
  Country: DE (occurrence: DE)
  Receive Date: 20210605
  Receipt Date: 20210806
  Transmission Date: 20211014
  Serious: Yes (Other)
  Sender: FDA-Public Use
  Company Number: DE-CELLTRION INC.-2021DE007464

PATIENT

DRUGS (1)
  1. TRUXIMA [Suspect]
     Active Substance: RITUXIMAB-ABBS
     Indication: B-CELL LYMPHOMA
     Dosage: 675 MG ON DAY 1 OF EACH CYCLE
     Route: 042
     Dates: start: 20200103, end: 20200511

REACTIONS (5)
  - Nausea [Recovered/Resolved]
  - Herpes zoster [Recovered/Resolved]
  - Decreased appetite [Unknown]
  - Weight decreased [Recovered/Resolved]
  - White blood cell count decreased [Recovered/Resolved]

NARRATIVE: CASE EVENT DATE: 20191204
